FAERS Safety Report 6902989-5 (Version None)
Quarter: 2010Q3

REPORT INFORMATION
  Report Type: 
  Country: None (occurrence: None)
  Receive Date: 20100803
  Receipt Date: 20080810
  Transmission Date: 20110219
  Serious: No
  Sender: FDA-Public Use
  Company Number: US-PFIZER INC-2008067075

PATIENT
  Sex: Female

DRUGS (3)
  1. LYRICA [Suspect]
     Dates: start: 20080801, end: 20080810
  2. VISTARIL [Concomitant]
  3. ATIVAN [Concomitant]
     Indication: ANXIETY

REACTIONS (4)
  - CONFUSIONAL STATE [None]
  - ILL-DEFINED DISORDER [None]
  - POOR QUALITY SLEEP [None]
  - SOMNOLENCE [None]
